FAERS Safety Report 8523179-9 (Version None)
Quarter: 2012Q3

REPORT INFORMATION
  Report Type: 
  Country: None (occurrence: None)
  Receive Date: 20120713
  Receipt Date: 20120713
  Transmission Date: 20120928
  Serious: Yes (Hospitalization)
  Sender: FDA-Public Use
  Company Number: None

PATIENT
  Age: 66 Year
  Sex: Female
  Weight: 55 kg

DRUGS (2)
  1. ZIPRASIDONE 60 MG [Suspect]
     Indication: SCHIZOPHRENIA
     Dosage: 60 MG DAILY PO, PRIOR TO ADMIT
     Route: 048
  2. QUETIAPINE [Suspect]
     Indication: SCHIZOPHRENIA
     Dosage: PO RECENTLY DC'D
     Route: 048

REACTIONS (5)
  - ATAXIA [None]
  - EXTRAPYRAMIDAL DISORDER [None]
  - DRUG INEFFECTIVE [None]
  - CONDITION AGGRAVATED [None]
  - DYSARTHRIA [None]
